FAERS Safety Report 13036466 (Version 1)
Quarter: 2016Q4

REPORT INFORMATION
  Report Type: Spontaneous
  Country: US (occurrence: US)
  Receive Date: 20161216
  Receipt Date: 20161216
  Transmission Date: 20170207
  Serious: No
  Sender: FDA-Public Use
  Company Number: US-IMPAX LABORATORIES, INC-2016-IPXL-01350

PATIENT
  Age: 5 Year
  Sex: Male
  Weight: 167 kg

DRUGS (2)
  1. DEXMETHYLPHENIDATE HYDROCHLORIDE ER [Suspect]
     Active Substance: DEXMETHYLPHENIDATE HYDROCHLORIDE
     Dosage: 10 MG, 1 /DAY
     Route: 048
     Dates: start: 20160926, end: 20160927
  2. DEXMETHYLPHENIDATE HYDROCHLORIDE ER [Suspect]
     Active Substance: DEXMETHYLPHENIDATE HYDROCHLORIDE
     Indication: ATTENTION DEFICIT/HYPERACTIVITY DISORDER
     Dosage: 5 MG, 1 /DAY
     Route: 048
     Dates: start: 20160919

REACTIONS (1)
  - Urticaria [Recovered/Resolved]

NARRATIVE: CASE EVENT DATE: 20160926
